FAERS Safety Report 25679644 (Version 1)
Quarter: 2025Q3

REPORT INFORMATION
  Report Type: Spontaneous
  Country: AU (occurrence: AU)
  Receive Date: 20250814
  Receipt Date: 20250814
  Transmission Date: 20251021
  Serious: Yes (Hospitalization)
  Sender: BOEHRINGER INGELHEIM
  Company Number: AU-BoehringerIngelheim-2025-BI-088039

PATIENT
  Sex: Male

DRUGS (3)
  1. JARDIANCE [Suspect]
     Active Substance: EMPAGLIFLOZIN
     Indication: Product used for unknown indication
  2. APIXABAN [Concomitant]
     Active Substance: APIXABAN
  3. PREGABALIN [Concomitant]
     Active Substance: PREGABALIN
     Indication: Herpes zoster

REACTIONS (3)
  - Pulmonary embolism [Unknown]
  - Polycythaemia [Recovered/Resolved]
  - Chest pain [Unknown]
